FAERS Safety Report 13788111 (Version 7)
Quarter: 2022Q3

REPORT INFORMATION
  Report Type: Spontaneous
  Country: CA (occurrence: CA)
  Receive Date: 20170725
  Receipt Date: 20220715
  Transmission Date: 20221027
  Serious: Yes (Other)
  Sender: FDA-Public Use
  Company Number: CA-PFIZER INC-2016469372

PATIENT
  Age: 58 Year
  Sex: Male

DRUGS (26)
  1. SOMAVERT [Suspect]
     Active Substance: PEGVISOMANT
     Indication: Acromegaly
     Dosage: 30 MG, 2X/WEEK
     Route: 058
     Dates: start: 201511
  2. SOMAVERT [Suspect]
     Active Substance: PEGVISOMANT
     Indication: Pituitary tumour benign
     Dosage: 30 MG, WEEKLY
     Route: 058
     Dates: start: 201607, end: 2016
  3. SOMAVERT [Suspect]
     Active Substance: PEGVISOMANT
     Indication: Insulin-like growth factor abnormal
     Dosage: 30 MG, 2X/WEEK
     Route: 058
     Dates: start: 20160715, end: 201903
  4. SOMAVERT [Suspect]
     Active Substance: PEGVISOMANT
     Dosage: 30 MG, 2X/WEEK
     Route: 058
     Dates: start: 2016, end: 2019
  5. SOMAVERT [Suspect]
     Active Substance: PEGVISOMANT
     Dosage: 30 MG, 3X/WEEK
     Route: 058
     Dates: start: 201903, end: 201907
  6. SOMAVERT [Suspect]
     Active Substance: PEGVISOMANT
     Dosage: 30 MG, 3X/WEEK
     Route: 058
     Dates: start: 201906, end: 2019
  7. SOMAVERT [Suspect]
     Active Substance: PEGVISOMANT
     Dosage: 30 MG, 4X/WEEK
     Route: 058
     Dates: start: 201907, end: 2019
  8. SOMAVERT [Suspect]
     Active Substance: PEGVISOMANT
     Dosage: 30 MG, 4X/WEEK
     Route: 058
     Dates: start: 2019, end: 2019
  9. SOMAVERT [Suspect]
     Active Substance: PEGVISOMANT
     Dosage: 30 MG, DAILY
     Route: 058
     Dates: start: 2019
  10. ROSUVASTATIN CALCIUM [Concomitant]
     Active Substance: ROSUVASTATIN CALCIUM
     Dosage: 20 MG, 1X/DAY
     Route: 048
     Dates: start: 2009
  11. ASPIRIN [Concomitant]
     Active Substance: ASPIRIN
     Dosage: 81 MG, DAILY
     Dates: start: 2009
  12. CHOLECALCIFEROL [Concomitant]
     Active Substance: CHOLECALCIFEROL
     Dosage: 10000 IU, WEEKLY
     Route: 048
     Dates: start: 2015
  13. TESTOSTERONE [Concomitant]
     Active Substance: TESTOSTERONE
     Dosage: 75 MG, WEEKLY
     Route: 058
     Dates: start: 2014
  14. GLUCOZIDE [GLICLAZIDE] [Concomitant]
     Dosage: 30 MG, INCREASED TO 3 TIMES IN THE MORNING
  15. JARDIANCE [Concomitant]
     Active Substance: EMPAGLIFLOZIN
     Indication: Diabetes mellitus
     Dosage: 25 MG, 1X/DAY
     Route: 048
     Dates: start: 20170713
  16. OLMESARTAN MEDOXOMIL [Concomitant]
     Active Substance: OLMESARTAN MEDOXOMIL
     Dosage: 20 MG/12.5 MG, 1X/DAY
     Route: 048
     Dates: start: 2009
  17. PRO GLYBURIDE [Concomitant]
     Indication: Diabetes mellitus
     Dosage: 5 MG, 2X/DAY
     Route: 048
     Dates: start: 2016
  18. METFORMIN HYDROCHLORIDE [Concomitant]
     Active Substance: METFORMIN HYDROCHLORIDE
     Indication: Diabetes mellitus
     Dosage: 850 MG, 2X/DAY
     Route: 048
     Dates: start: 2016
  19. METFORMIN HYDROCHLORIDE [Concomitant]
     Active Substance: METFORMIN HYDROCHLORIDE
     Dosage: 850 MG, 3X/DAY
     Route: 048
  20. LANREOTIDE [Concomitant]
     Active Substance: LANREOTIDE
     Dosage: 120 MG, MONTHLY (EVERY 4 WEEKS)
     Route: 030
     Dates: start: 2014
  21. SYNTHROID [Concomitant]
     Active Substance: LEVOTHYROXINE SODIUM
     Dosage: 200 UG, UNK
     Route: 048
  22. SYNTHROID [Concomitant]
     Active Substance: LEVOTHYROXINE SODIUM
     Dosage: 0.2 MG, DAILY
     Route: 048
     Dates: start: 2014
  23. SYNTHROID [Concomitant]
     Active Substance: LEVOTHYROXINE SODIUM
     Dosage: 200 UG, 1X/DAY
     Route: 048
  24. TESTOSTERONE [Concomitant]
     Active Substance: TESTOSTERONE
     Dosage: 25 MG/WEEK ONCE A WEEK AND 18 MG/WEEK ONCE A WEEK
  25. VITAMIN D NOS [Concomitant]
     Active Substance: VITAMIN D NOS
     Dosage: 10000 IU, WEEKLY
  26. VICTOZA [Concomitant]
     Active Substance: LIRAGLUTIDE
     Indication: Diabetes mellitus
     Dosage: 1.8 MG, 1X/DAY
     Route: 058
     Dates: start: 2017

REACTIONS (5)
  - Diabetes mellitus inadequate control [Not Recovered/Not Resolved]
  - Off label use [Unknown]
  - Product use issue [Unknown]
  - Insulin-like growth factor increased [Unknown]
  - Amnesia [Unknown]

NARRATIVE: CASE EVENT DATE: 20160715
